FAERS Safety Report 10566780 (Version 2)
Quarter: 2014Q4

REPORT INFORMATION
  Report Type: Report from Study
  Country: US (occurrence: US)
  Receive Date: 20141105
  Receipt Date: 20141209
  Transmission Date: 20150529
  Serious: Yes (Other)
  Sender: FDA-Public Use
  Company Number: US-BAYER-2014-162760

PATIENT
  Age: 68 Year
  Sex: Male

DRUGS (2)
  1. NEXAVAR [Suspect]
     Active Substance: SORAFENIB
     Indication: HEPATOCELLULAR CARCINOMA
     Dosage: 400 MG, QD
     Route: 048
     Dates: start: 20141004, end: 20141109
  2. NEXAVAR [Suspect]
     Active Substance: SORAFENIB
     Indication: HEPATOCELLULAR CARCINOMA
     Dosage: 400 MG, BID
     Route: 048
     Dates: start: 20141110

REACTIONS (5)
  - Diarrhoea [Not Recovered/Not Resolved]
  - Decreased appetite [None]
  - Blood pressure increased [Recovering/Resolving]
  - Amnesia [Not Recovered/Not Resolved]
  - Weight decreased [None]

NARRATIVE: CASE EVENT DATE: 201410
